FAERS Safety Report 4550160-7 (Version None)
Quarter: 2005Q1

REPORT INFORMATION
  Report Type: 
  Country: None (occurrence: None)
  Receive Date: 20050112
  Receipt Date: 20050107
  Transmission Date: 20050727
  Serious: Yes (Hospitalization)
  Sender: FDA-Public Use
  Company Number: US-ROCHE-391980

PATIENT
  Sex: Female

DRUGS (5)
  1. XENICAL [Suspect]
     Indication: OBESITY
     Route: 048
  2. CARDIAC MEDICATION NOS [Suspect]
     Indication: DRUG USE FOR UNKNOWN INDICATION
     Route: 065
  3. PLAVIX [Concomitant]
  4. METOPROLOL [Concomitant]
     Indication: HYPERTENSION
     Dosage: DRUG NAME: TOPROL.
  5. ASPIRIN [Concomitant]

REACTIONS (1)
  - CARDIAC DISORDER [None]
